FAERS Safety Report 14830522 (Version 2)
Quarter: 2019Q2

REPORT INFORMATION
  Report Type: Spontaneous
  Country: US (occurrence: US)
  Receive Date: 20180430
  Receipt Date: 20190416
  Transmission Date: 20190711
  Serious: No
  Sender: FDA-Public Use
  Company Number: US-SA-2018SA041900

PATIENT
  Age: 78 Year
  Sex: Male

DRUGS (25)
  1. METFORMIN HYDROCHLORIDE. [Concomitant]
     Active Substance: METFORMIN HYDROCHLORIDE
  2. CLOPIDOGREL [Concomitant]
     Active Substance: CLOPIDOGREL BISULFATE
  3. PRALUENT [Suspect]
     Active Substance: ALIROCUMAB
     Indication: BLOOD CHOLESTEROL INCREASED
     Dosage: 75 MG,QOW
     Route: 058
     Dates: start: 20161201
  4. ISOSORBIDE MONONITRATE. [Concomitant]
     Active Substance: ISOSORBIDE MONONITRATE
  5. PRALUENT [Suspect]
     Active Substance: ALIROCUMAB
     Indication: DISEASE RISK FACTOR
  6. COQ10 [UBIDECARENONE] [Concomitant]
     Active Substance: UBIDECARENONE
  7. CRANBERRY [ASCORBIC ACID;VACCINIUM SPP.] [Concomitant]
  8. GLUCOSAMINE CHONDROITIN [CHONDROITIN SULFATE SODIUM;GLUCOSAMINE] [Concomitant]
  9. TYLENOL [Concomitant]
     Active Substance: ACETAMINOPHEN
  10. NITROGLYCERIN. [Concomitant]
     Active Substance: NITROGLYCERIN
  11. POTASSIUM CHLORIDE. [Concomitant]
     Active Substance: POTASSIUM CHLORIDE
  12. VITAMIN C [Concomitant]
     Active Substance: ASCORBIC ACID
  13. OXYCODONE [Concomitant]
     Active Substance: OXYCODONE
  14. PRILOSEC [Concomitant]
     Active Substance: OMEPRAZOLE MAGNESIUM
  15. TRIAMTERENE. [Concomitant]
     Active Substance: TRIAMTERENE
  16. OXYBUTYNIN CHLORIDE. [Concomitant]
     Active Substance: OXYBUTYNIN CHLORIDE
  17. MUPIROCIN. [Concomitant]
     Active Substance: MUPIROCIN
  18. IBU [Concomitant]
     Active Substance: IBUPROFEN
  19. TART CHERRY [Concomitant]
  20. VITAMIN D3 [Concomitant]
     Active Substance: CHOLECALCIFEROL
  21. PANTOPRAZOLE SODIUM. [Concomitant]
     Active Substance: PANTOPRAZOLE SODIUM
  22. IRON [Concomitant]
     Active Substance: IRON
  23. ADVIL [IBUPROFEN] [Concomitant]
     Active Substance: IBUPROFEN
  24. ALLERGY RELIEF [CETIRIZINE HYDROCHLORIDE] [Concomitant]
  25. SULFAMETHOXAZOLE AND TRIMETHOPRIM [Concomitant]
     Active Substance: SULFAMETHOXAZOLE\TRIMETHOPRIM

REACTIONS (1)
  - Product dose omission [Unknown]
